FAERS Safety Report 19809891 (Version 1)
Quarter: 2021Q3

REPORT INFORMATION
  Report Type: Spontaneous
  Country: US (occurrence: US)
  Receive Date: 20210909
  Receipt Date: 20210909
  Transmission Date: 20211014
  Serious: Yes (Hospitalization)
  Sender: FDA-Public Use
  Company Number: None

PATIENT
  Age: 33 Year
  Sex: Male
  Weight: 64 kg

DRUGS (5)
  1. ALBUTEROL PRN [Concomitant]
  2. CELEXA [Concomitant]
     Active Substance: CITALOPRAM HYDROBROMIDE
  3. REGEN?COV [Suspect]
     Active Substance: CASIRIVIMAB\IMDEVIMAB
     Indication: COVID-19
     Dosage: ?          OTHER FREQUENCY:ONCE;?
     Route: 017
     Dates: start: 20210907, end: 20210907
  4. ADVAIR DISKUS [Concomitant]
     Active Substance: FLUTICASONE PROPIONATE\SALMETEROL XINAFOATE
  5. LISINOPRIL 10 MG DAILY [Concomitant]

REACTIONS (6)
  - Flushing [None]
  - Hyperventilation [None]
  - Headache [None]
  - Infusion related reaction [None]
  - Paraesthesia [None]
  - Dyspnoea [None]

NARRATIVE: CASE EVENT DATE: 20210907
